FAERS Safety Report 5683068-4 (Version None)
Quarter: 2008Q1

REPORT INFORMATION
  Report Type: 
  Country: None (occurrence: None)
  Receive Date: 20080327
  Receipt Date: 20080326
  Transmission Date: 20080703
  Serious: Yes (Hospitalization)
  Sender: FDA-Public Use
  Company Number: AU-JNJFOC-20080305984

PATIENT
  Age: 83 Year
  Sex: Female

DRUGS (7)
  1. GALANTAMINE HYDROBROMIDE [Suspect]
     Indication: DRUG USE FOR UNKNOWN INDICATION
     Route: 048
  2. LIPITOR [Suspect]
     Indication: DRUG USE FOR UNKNOWN INDICATION
     Route: 048
  3. COLOXYL WITH SENNA [Concomitant]
  4. ENALAPRIL MALEATE [Concomitant]
  5. ISCOVER [Concomitant]
  6. MOVICOL [Concomitant]
  7. PANAFCORT [Concomitant]

REACTIONS (6)
  - AGGRESSION [None]
  - CEREBROVASCULAR ACCIDENT [None]
  - DISTURBANCE IN ATTENTION [None]
  - DYSARTHRIA [None]
  - PARANOIA [None]
  - SOCIAL AVOIDANT BEHAVIOUR [None]
